FAERS Safety Report 11751952 (Version 1)
Quarter: 2015Q4

REPORT INFORMATION
  Report Type: Spontaneous
  Country: US (occurrence: US)
  Receive Date: 20151118
  Receipt Date: 20151118
  Transmission Date: 20160304
  Serious: No
  Sender: FDA-Public Use
  Company Number: US-UCBSA-2015027743

PATIENT
  Sex: Female

DRUGS (1)
  1. POLYTHYLENE GLYCOL 3350 OTC [Suspect]
     Active Substance: POLYETHYLENE GLYCOL 3500
     Indication: ABDOMINAL DISCOMFORT
     Dosage: UNK
     Dates: start: 20150701

REACTIONS (1)
  - pH urine increased [Unknown]

NARRATIVE: CASE EVENT DATE: 2015
